FAERS Safety Report 18493680 (Version 5)
Quarter: 2021Q1

REPORT INFORMATION
  Report Type: Report from Study
  Country: CA (occurrence: CA)
  Receive Date: 20201111
  Receipt Date: 20210302
  Transmission Date: 20210419
  Serious: Yes (Other)
  Sender: FDA-Public Use
  Company Number: CA-JNJFOC-20201110674

PATIENT
  Age: 38 Year
  Sex: Male
  Weight: 69 kg

DRUGS (2)
  1. REMICADE [Suspect]
     Active Substance: INFLIXIMAB
     Indication: COLITIS ULCERATIVE
     Route: 042
     Dates: start: 20201015
  2. REMICADE [Suspect]
     Active Substance: INFLIXIMAB
     Dosage: ON 24?FEB?2021, THE PATIENT RECEIVED 4TH 400 MG 1 EVERY 4 WEEK INFLIXIMAB INFUSION.
     Route: 042
     Dates: start: 20210224

REACTIONS (4)
  - Off label use [Unknown]
  - Clostridium difficile infection [Unknown]
  - Product use issue [Unknown]
  - Colitis ulcerative [Recovering/Resolving]

NARRATIVE: CASE EVENT DATE: 20210124
